FAERS Safety Report 5069854-2 (Version None)
Quarter: 2006Q3

REPORT INFORMATION
  Report Type: 
  Country: None (occurrence: None)
  Receive Date: 20060802
  Receipt Date: 20060802
  Transmission Date: 20061208
  Serious: Yes (Other)
  Sender: FDA-Public Use
  Company Number: None

PATIENT
  Sex: Female
  Weight: 52.1637 kg

DRUGS (2)
  1. SEASONALE [Suspect]
     Indication: CONTRACEPTION
     Dosage: ONE TABLET  QD PO
     Route: 048
     Dates: start: 20060101
  2. SEASONALE [Suspect]
     Indication: CONTRACEPTION
     Dosage: ONE TABLET  QD PO
     Route: 048
     Dates: start: 20060501

REACTIONS (2)
  - IRON DEFICIENCY ANAEMIA [None]
  - MENORRHAGIA [None]
